FAERS Safety Report 18309632 (Version 2)
Quarter: 2022Q1

REPORT INFORMATION
  Report Type: Spontaneous
  Country: US (occurrence: US)
  Receive Date: 20200924
  Receipt Date: 20220225
  Transmission Date: 20220424
  Serious: Yes (Hospitalization, Other)
  Sender: FDA-Public Use
  Company Number: US-SANOFI-00281574

PATIENT
  Sex: Female

DRUGS (1)
  1. DUPIXENT [Suspect]
     Active Substance: DUPILUMAB
     Indication: Asthma
     Dosage: 300 MG, QOW

REACTIONS (13)
  - Anaphylactic reaction [Unknown]
  - Swelling face [Unknown]
  - Swollen tongue [Unknown]
  - Dyspnoea [Unknown]
  - Respiration abnormal [Unknown]
  - Arthralgia [Unknown]
  - Dizziness [Unknown]
  - Paraesthesia [Unknown]
  - Rash [Unknown]
  - Malaise [Unknown]
  - Condition aggravated [Unknown]
  - Adverse drug reaction [Unknown]
  - Condition aggravated [Unknown]
